FAERS Safety Report 20644151 (Version 3)
Quarter: 2022Q2

REPORT INFORMATION
  Report Type: Report from Study
  Country: GB (occurrence: GB)
  Receive Date: 20220328
  Receipt Date: 20220422
  Transmission Date: 20220721
  Serious: Yes (Other)
  Sender: FDA-Public Use
  Company Number: GB-SAMSUNG BIOEPIS-SB-2021-12382

PATIENT
  Age: 48 Year
  Sex: Female

DRUGS (3)
  1. METHOTREXATE SODIUM [Suspect]
     Active Substance: METHOTREXATE SODIUM
     Dosage: UNK UNK, WEEKLY
     Route: 065
  2. IMRALDI [Suspect]
     Active Substance: ADALIMUMAB
     Indication: Psoriatic arthropathy
     Dosage: 40 MG EVERY 2 WEEKS
     Route: 058
     Dates: start: 20210415
  3. ETANERCEPT [Suspect]
     Active Substance: ETANERCEPT
     Indication: Psoriatic arthropathy
     Dosage: 50 MG, WEEKLY
     Route: 058
     Dates: start: 20181005

REACTIONS (7)
  - Nausea [Unknown]
  - Fatigue [Unknown]
  - Diverticulitis [Unknown]
  - Product dose omission issue [Unknown]
  - Product storage error [Unknown]
  - Pain [Unknown]
  - Gait disturbance [Not Recovered/Not Resolved]
